FAERS Safety Report 7974703-6 (Version None)
Quarter: 2011Q4

REPORT INFORMATION
  Report Type: 
  Country: None (occurrence: None)
  Receive Date: 20111213
  Receipt Date: 20111205
  Transmission Date: 20120403
  Serious: Yes (Death, Hospitalization, Other)
  Sender: FDA-Public Use
  Company Number: US-ELI_LILLY_AND_COMPANY-US201107008100

PATIENT
  Sex: Female
  Weight: 82.1 kg

DRUGS (3)
  1. PREDNISONE TAB [Concomitant]
  2. ASPIRIN [Concomitant]
  3. FORTEO [Suspect]
     Indication: OSTEOPOROSIS
     Dosage: 20 UG, QD
     Route: 058
     Dates: start: 20110523

REACTIONS (8)
  - GASTROINTESTINAL HAEMORRHAGE [None]
  - FACE INJURY [None]
  - FACIAL BONES FRACTURE [None]
  - PARALYSIS [None]
  - LUNG INFECTION PSEUDOMONAL [None]
  - FALL [None]
  - ISCHAEMIC STROKE [None]
  - PSEUDOMONAL SEPSIS [None]
